FAERS Safety Report 9502102 (Version 1)
Quarter: 2013Q3

REPORT INFORMATION
  Report Type: Spontaneous
  Country: US (occurrence: US)
  Receive Date: 20130905
  Receipt Date: 20130905
  Transmission Date: 20140515
  Serious: Yes (Other)
  Sender: FDA-Public Use
  Company Number: US-ABBOTT-13P-163-1141043-00

PATIENT
  Sex: Male

DRUGS (4)
  1. DEPAKOTE [Suspect]
     Indication: CONVULSION
  2. DEPAKOTE [Suspect]
  3. KEPPRA [Concomitant]
     Indication: CONVULSION
  4. VITIPEL [Concomitant]
     Indication: CONVULSION

REACTIONS (3)
  - Surgery [Recovered/Resolved]
  - Convulsion [Unknown]
  - Heart rate increased [Unknown]
